FAERS Safety Report 6749743-5 (Version None)
Quarter: 2010Q2

REPORT INFORMATION
  Report Type: 
  Country: None (occurrence: None)
  Receive Date: 20100527
  Receipt Date: 20100527
  Transmission Date: 20101027
  Serious: Yes (Hospitalization, Other)
  Sender: FDA-Public Use
  Company Number: None

PATIENT
  Age: 32 Year
  Sex: Female
  Weight: 58.9676 kg

DRUGS (1)
  1. JOLESSA GENERIC FOR SEASONALE [Suspect]
     Indication: MENORRHAGIA
     Dosage: 1 X DAY PO
     Route: 048
     Dates: start: 20081201, end: 20081220

REACTIONS (3)
  - APPARENT DEATH [None]
  - CYST [None]
  - PULMONARY EMBOLISM [None]
